FAERS Safety Report 5922316-X (Version None)
Quarter: 2008Q4

REPORT INFORMATION
  Report Type: 
  Country: None (occurrence: None)
  Receive Date: 20081017
  Receipt Date: 20081013
  Transmission Date: 20090506
  Serious: Yes (Hospitalization)
  Sender: FDA-Public Use
  Company Number: US-ELI_LILLY_AND_COMPANY-US200810003281

PATIENT
  Sex: Male

DRUGS (1)
  1. HUMALOG [Suspect]

REACTIONS (3)
  - EXPIRED DRUG ADMINISTERED [None]
  - FALL [None]
  - THROMBOSIS [None]
